FAERS Safety Report 6719485-0 (Version None)
Quarter: 2010Q2

REPORT INFORMATION
  Report Type: 
  Country: None (occurrence: None)
  Receive Date: 20100511
  Receipt Date: 20100419
  Transmission Date: 20101027
  Serious: Yes (Disabling)
  Sender: FDA-Public Use
  Company Number: FR-ROCHE-696539

PATIENT
  Sex: Female

DRUGS (8)
  1. TRASTUZUMAB [Suspect]
     Indication: BREAST CANCER
     Dosage: DAILY DOSE AS 150 MILLIGRAM EVERY CYCLE.
     Route: 041
     Dates: start: 20080101, end: 20090101
  2. DOCETAXEL [Suspect]
     Indication: BREAST CANCER
     Dosage: DAILY DOSE 100 MILLIGRAM(S)/SQUARE METER;EVERY CYCLE
     Route: 041
     Dates: start: 20080101, end: 20080301
  3. FLUOROURACIL [Suspect]
     Indication: BREAST CANCER
     Dosage: NAME RPTD AS FLUOROURACILE
     Route: 041
     Dates: start: 20080101, end: 20080501
  4. CYCLOPHOSPHAMIDE [Suspect]
     Indication: BREAST CANCER
     Dosage: DRUG AS ENDOXAN, DAILY DOSE 500 MILLIGRAM(S)/SQUARE METER;EVERY CYCLE
     Route: 041
     Dates: start: 20080101, end: 20080501
  5. EPIRUBICIN [Suspect]
     Indication: BREAST CANCER
     Dosage: 100 MILLIGRAM(S)/SQUARE METER;EVERY CYCLE
     Route: 041
     Dates: start: 20080101, end: 20080501
  6. TAMOXIFEN CITRATE [Concomitant]
     Indication: BREAST CANCER
     Dosage: TAMOXIFEN (TAMOXIFEN)
     Route: 048
     Dates: start: 20080901
  7. DECAPEPTYL [Concomitant]
     Indication: BREAST CANCER
     Dosage: DECAPEPTYL /SWE/ (GONADORELIN)
     Route: 048
     Dates: start: 20080101
  8. DRUG VEHICLE NOS [Concomitant]

REACTIONS (1)
  - ALOPECIA [None]
